FAERS Safety Report 4626931-5 (Version None)
Quarter: 2005Q2

REPORT INFORMATION
  Report Type: 
  Country: None (occurrence: None)
  Receive Date: 20050405
  Receipt Date: 20050325
  Transmission Date: 20051028
  Serious: Yes (Hospitalization)
  Sender: FDA-Public Use
  Company Number: US-JNJFOC-20050300872

PATIENT
  Age: 28 Year
  Sex: Female
  Weight: 65.77 kg

DRUGS (8)
  1. LEVAQUIN [Suspect]
     Dates: start: 20050225, end: 20050227
  2. ADVIL COLD AND SINUS [Interacting]
  3. ADVIL COLD AND SINUS [Interacting]
     Indication: PHARYNGITIS
  4. ZOLOFT [Interacting]
     Indication: DEPRESSION
  5. HYOSCINE HYDROBROMIDE [Suspect]
     Indication: MOTION SICKNESS
     Route: 003
     Dates: start: 20050212, end: 20050219
  6. AIRBORN [Interacting]
     Indication: DRUG USE FOR UNKNOWN INDICATION
  7. TRI-NORINYL 21-DAY [Concomitant]
  8. TRI-NORINYL 21-DAY [Concomitant]

REACTIONS (11)
  - ABNORMAL BEHAVIOUR [None]
  - ACTIVITIES OF DAILY LIVING IMPAIRED [None]
  - ANOREXIA [None]
  - ANXIETY [None]
  - APHASIA [None]
  - CONFUSIONAL STATE [None]
  - DELIRIUM [None]
  - DRUG INTERACTION [None]
  - EATING DISORDER [None]
  - INSOMNIA [None]
  - MENTAL DISORDER [None]
